FAERS Safety Report 5029352-9 (Version None)
Quarter: 2006Q2

REPORT INFORMATION
  Report Type: 
  Country: None (occurrence: None)
  Receive Date: 20060614
  Receipt Date: 20060601
  Transmission Date: 20061013
  Serious: Yes (Hospitalization)
  Sender: FDA-Public Use
  Company Number: 224108

PATIENT
  Age: 56 Year
  Sex: Female

DRUGS (15)
  1. AVASTIN [Suspect]
     Indication: LUNG NEOPLASM MALIGNANT
     Dosage: 1415 MG, INTRAVENOUS
     Route: 042
     Dates: start: 20060316, end: 20060316
  2. ALIMTA [Suspect]
     Indication: LUNG NEOPLASM MALIGNANT
     Dosage: 1050 MG, INTRAVENOUS
     Route: 042
     Dates: start: 20060316
  3. CARBOPLATIN [Suspect]
     Indication: LUNG NEOPLASM MALIGNANT
     Dosage: 500 MG, INTRAVENOUS
     Route: 042
  4. DARVOCET (ACETAMINOPHEN, PROPOXYPHENE NAPSYLATE) [Concomitant]
  5. ZELNORM [Concomitant]
  6. NEXIUM [Concomitant]
  7. KLONOPIN [Concomitant]
  8. EMEND [Concomitant]
  9. TARCEVA [Concomitant]
  10. DILAUDID [Concomitant]
  11. MOTRIN [Concomitant]
  12. ZOFRAN [Concomitant]
  13. SENNA (SENNA) [Concomitant]
  14. MIRALAX [Concomitant]
  15. FOLATE (FOLATE SODIUM) [Concomitant]

REACTIONS (16)
  - ADRENAL MASS [None]
  - ANAEMIA [None]
  - APHAGIA [None]
  - BLOOD CREATININE INCREASED [None]
  - BLOOD GLUCOSE INCREASED [None]
  - CULTURE URINE POSITIVE [None]
  - DECREASED APPETITE [None]
  - DIABETES INSIPIDUS [None]
  - DISEASE PROGRESSION [None]
  - FATIGUE [None]
  - LACTOBACILLUS INFECTION [None]
  - METASTASES TO BONE [None]
  - MUSCULOSKELETAL CHEST PAIN [None]
  - PLEURITIC PAIN [None]
  - PYREXIA [None]
  - RENAL FAILURE ACUTE [None]
